FAERS Safety Report 7708866-4 (Version None)
Quarter: 2011Q3

REPORT INFORMATION
  Report Type: 
  Country: None (occurrence: None)
  Receive Date: 20110825
  Receipt Date: 20110817
  Transmission Date: 20111222
  Serious: Yes (Hospitalization)
  Sender: FDA-Public Use
  Company Number: BR-SANOFI-AVENTIS-2011SA051151

PATIENT
  Age: 39 Year
  Sex: Female
  Weight: 90 kg

DRUGS (4)
  1. BLINDED THERAPY [Suspect]
     Indication: BREAST CANCER
     Dates: start: 20110705
  2. DEXAMETHASONE [Concomitant]
     Dates: start: 20110627
  3. TRAMADOL HYDROCHLORIDE [Concomitant]
     Dates: start: 20110627
  4. DOCETAXEL [Suspect]
     Indication: BREAST CANCER
     Route: 041
     Dates: start: 20110705, end: 20110705

REACTIONS (1)
  - HYDROCEPHALUS [None]
